FAERS Safety Report 7576529-4 (Version None)
Quarter: 2011Q2

REPORT INFORMATION
  Report Type: 
  Country: None (occurrence: None)
  Receive Date: 20110624
  Receipt Date: 20110624
  Transmission Date: 20111010
  Serious: Yes (Hospitalization)
  Sender: FDA-Public Use
  Company Number: None

PATIENT
  Sex: Female
  Weight: 73.4 kg

DRUGS (3)
  1. TAXOL [Suspect]
     Dosage: 1920 MG
  2. CYCLOPHOSPHAMIDE [Suspect]
  3. DOXORUBICIN HYDROCHLORIDE [Suspect]
     Dosage: 480 MG

REACTIONS (8)
  - DYSPNOEA [None]
  - HYPERTENSION [None]
  - PYREXIA [None]
  - NIGHT SWEATS [None]
  - MUCOSAL INFLAMMATION [None]
  - DIARRHOEA [None]
  - B PRECURSOR TYPE ACUTE LEUKAEMIA [None]
  - FATIGUE [None]
